FAERS Safety Report 9087487 (Version 2)
Quarter: 2013Q2

REPORT INFORMATION
  Report Type: Spontaneous
  Country: US (occurrence: US)
  Receive Date: 20130217
  Receipt Date: 20130415
  Transmission Date: 20140414
  Serious: Yes (Hospitalization, Other)
  Sender: FDA-Public Use
  Company Number: US-JNJFOC-20130205264

PATIENT
  Sex: Female
  Weight: 95.26 kg

DRUGS (2)
  1. XARELTO [Suspect]
     Indication: THROMBOSIS PROPHYLAXIS
     Route: 048
  2. DOXYCYCLINE [Concomitant]
     Route: 065

REACTIONS (4)
  - Postoperative wound infection [Not Recovered/Not Resolved]
  - Haematoma [Unknown]
  - Cellulitis [Unknown]
  - Arthralgia [Unknown]
